FAERS Safety Report 8361602-3 (Version None)
Quarter: 2012Q2

REPORT INFORMATION
  Report Type: 
  Country: None (occurrence: None)
  Receive Date: 20120515
  Receipt Date: 20120510
  Transmission Date: 20120825
  Serious: Yes (Death, Hospitalization)
  Sender: FDA-Public Use
  Company Number: CA-CELGENEUS-028-C5013-12011266

PATIENT
  Sex: Male
  Weight: 57.2 kg

DRUGS (73)
  1. PRAVASTATIN [Concomitant]
     Indication: HYPERTENSION
     Dosage: 40 MILLIGRAM
     Route: 048
     Dates: start: 20050101
  2. TRAVOPROST AND TIMOLOL [Concomitant]
     Indication: GLAUCOMA
     Route: 047
     Dates: start: 20070101, end: 20120110
  3. CALCIUM GLUCONATE [Concomitant]
     Dosage: 500 MILLIGRAM
     Route: 048
     Dates: start: 20120112, end: 20120113
  4. SODIUM CHLORIDE [Concomitant]
     Indication: HYPOTENSION
     Dosage: 120 MILLILITER
     Route: 040
     Dates: start: 20120110, end: 20120111
  5. ENSURE [Concomitant]
     Route: 065
     Dates: start: 20110201
  6. NIASPAN [Concomitant]
     Dosage: 500 MILLIGRAM
     Route: 048
     Dates: start: 20050101, end: 20120110
  7. SODIUM CHLORIDE [Concomitant]
     Dosage: 500 MILLILITER
     Route: 040
     Dates: start: 20120117, end: 20120117
  8. PEPCID [Concomitant]
     Indication: DYSPEPSIA
     Dosage: 20 MILLIGRAM
     Route: 041
     Dates: start: 20120112, end: 20120114
  9. TIMOLOL MALEATE [Concomitant]
     Indication: GLAUCOMA
     Dosage: 1 DROPS
     Route: 041
     Dates: start: 20120112, end: 20120118
  10. LYRICA [Concomitant]
     Dosage: 25 MILLIGRAM
     Route: 048
     Dates: end: 20111021
  11. FLU VACCINE [Concomitant]
     Dosage: .5 MILLILITER
     Route: 065
     Dates: start: 20101104, end: 20101104
  12. LENALIDOMIDE [Suspect]
     Indication: MULTIPLE MYELOMA
     Dosage: 25 MILLIGRAM
     Route: 048
     Dates: start: 20101104
  13. SYNTHROID [Concomitant]
     Indication: HYPOTHYROIDISM
     Dosage: .5 MILLIGRAM
     Route: 048
     Dates: start: 20110527, end: 20110623
  14. DILAUDID [Concomitant]
     Indication: PAIN
     Dosage: 1 MILLIGRAM
     Route: 048
     Dates: start: 20110901, end: 20120118
  15. DILAUDID [Concomitant]
     Dosage: 10 MILLIGRAM
     Route: 040
     Dates: start: 20120121
  16. LOVENOX [Concomitant]
     Dosage: 40
     Route: 058
     Dates: start: 20120114, end: 20120118
  17. VITAMIN D [Concomitant]
     Indication: MULTIPLE FRACTURES
     Dosage: 20
     Route: 065
     Dates: start: 20101007, end: 20101013
  18. LENALIDOMIDE [Suspect]
     Dosage: 25 MILLIGRAM
     Route: 048
     Dates: start: 20111222, end: 20120110
  19. OMEPRAZOLE (PRISOLEC) [Concomitant]
     Dosage: 20 MILLIGRAM
     Route: 048
     Dates: start: 20050101, end: 20120110
  20. TYLENOL (CAPLET) [Concomitant]
     Dosage: 650 MILLIGRAM
     Route: 048
     Dates: start: 20120112, end: 20120118
  21. MAGNESIUM SULFATE [Concomitant]
     Route: 041
     Dates: start: 20120101
  22. CALCIUM [Concomitant]
     Route: 065
     Dates: start: 20120101
  23. SODIUM CHLORIDE [Concomitant]
     Dosage: 50 MILLILITER
     Route: 040
     Dates: start: 20120112, end: 20120113
  24. SCOPOLAMINE [Concomitant]
     Dosage: .6 MILLIGRAM
     Route: 065
     Dates: start: 20120119
  25. ZOVIRAX [Concomitant]
     Route: 065
     Dates: start: 20101228, end: 20110112
  26. PROCHLORPERAZINE [Concomitant]
     Indication: NAUSEA
     Route: 065
  27. ALENDRONATE SODIUM [Concomitant]
     Route: 048
  28. VENTOLIN [Concomitant]
     Dosage: 4
     Route: 055
     Dates: start: 20120112
  29. XALATAN [Concomitant]
     Indication: GLAUCOMA
     Dosage: 1 DROPS
     Route: 058
     Dates: start: 20120112, end: 20120118
  30. SYNTHROID [Concomitant]
     Dosage: .1 MILLIGRAM
     Route: 048
     Dates: start: 20110721, end: 20120118
  31. DILAUDID [Concomitant]
     Dosage: .5 MILLIGRAM
     Route: 058
     Dates: start: 20120119, end: 20120121
  32. COLACE [Concomitant]
     Indication: CONSTIPATION
     Dosage: 100-200MG
     Route: 048
     Dates: start: 20100526, end: 20120110
  33. TYLENOL (CAPLET) [Concomitant]
     Dosage: 500MG, 1-2
     Route: 048
     Dates: end: 20120118
  34. ANUSOL [Concomitant]
     Route: 065
     Dates: start: 20120115, end: 20120118
  35. LEVOPHED [Concomitant]
     Indication: HYPOTENSION
     Dosage: 4 MILLIGRAM
     Route: 041
     Dates: start: 20120112, end: 20120114
  36. SOLU-CORTEF [Concomitant]
     Dosage: 50 MILLIGRAM
     Route: 041
     Dates: start: 20120113, end: 20120118
  37. MUCOMYST [Concomitant]
     Indication: PREMEDICATION
     Dosage: 600 MILLIGRAM
     Route: 048
     Dates: start: 20120114, end: 20120115
  38. NORMAL SALINE W/ KCL [Concomitant]
     Dosage: 80 CC
     Route: 040
     Dates: start: 20120113, end: 20120115
  39. POTASSIUM CHLORIDE [Concomitant]
     Dosage: 20 MILLIEQUIVALENTS
     Route: 048
     Dates: start: 20120114, end: 20120116
  40. DEXAMETHASONE [Suspect]
     Dosage: 12 MILLIGRAM
     Route: 065
     Dates: start: 20111222, end: 20120110
  41. AMLODIPINE BESYLATE [Concomitant]
     Indication: HYPERTENSION
     Dosage: 5 MILLIGRAM
     Route: 048
     Dates: start: 20050101, end: 20120110
  42. PRAVASTATIN [Concomitant]
  43. LASIX [Concomitant]
     Indication: OEDEMA
     Dosage: 20 MILLIGRAM
     Route: 041
     Dates: start: 20120114, end: 20120114
  44. SODIUM CHLORIDE [Concomitant]
     Dosage: 180 CC
     Route: 040
     Dates: start: 20120117, end: 20120118
  45. SERAX [Concomitant]
     Indication: INSOMNIA
     Dosage: 15 MILLIGRAM
     Route: 048
     Dates: start: 20120111, end: 20120118
  46. ALENDRONATE SODIUM [Concomitant]
     Indication: OSTEOPOROSIS
     Dosage: 70 MILLIGRAM
     Route: 048
  47. EURO-D [Concomitant]
     Dosage: 400 U
     Route: 048
     Dates: start: 20080101, end: 20120118
  48. EURO-D [Concomitant]
     Indication: OSTEOPOROSIS
  49. PANTOPRAZOLE SODIUM [Concomitant]
     Dosage: 40 MILLIGRAM
     Route: 048
     Dates: start: 20120111, end: 20120118
  50. SYNTHROID [Concomitant]
     Dosage: .075 MILLIGRAM
     Route: 048
     Dates: start: 20110624, end: 20110720
  51. POTASSIUM CHLORIDE [Concomitant]
     Dosage: 20 MICROGRAM
     Route: 048
     Dates: start: 20120113, end: 20120113
  52. POTASSIUM PHOSPHATES [Concomitant]
     Route: 041
     Dates: start: 20120114, end: 20120114
  53. LASIX [Concomitant]
     Dosage: 20 MILLIGRAM
     Route: 048
     Dates: start: 20120114, end: 20120117
  54. FLEXERIL [Concomitant]
     Route: 065
  55. HEPARIN [Concomitant]
     Indication: DYSPEPSIA
     Dosage: 5000
     Route: 058
     Dates: start: 20120112, end: 20120113
  56. BENADRYL [Concomitant]
     Dosage: 50 MILLIGRAM
     Route: 041
     Dates: start: 20120111, end: 20120111
  57. ASPIRIN [Concomitant]
     Indication: HYPERTENSION
     Dosage: 80 MILLIGRAM
     Route: 048
     Dates: start: 20050101, end: 20120118
  58. OMEPRAZOLE (PRISOLEC) [Concomitant]
  59. HYDROMORPHONE HCL [Concomitant]
     Indication: PAIN
     Dosage: 6 MILLIGRAM
     Route: 048
     Dates: start: 20110224, end: 20120121
  60. INHALER [Concomitant]
     Route: 055
  61. LACTULOSE [Concomitant]
     Indication: CONSTIPATION
     Route: 065
  62. ATROVENT [Concomitant]
     Dosage: 4
     Route: 055
     Dates: start: 20120112
  63. HEPARIN [Concomitant]
     Dosage: 5000
     Route: 058
     Dates: start: 20120113, end: 20120114
  64. CRESTOR [Concomitant]
     Dosage: 2.5 MILLIGRAM
     Route: 048
     Dates: start: 20120112, end: 20120118
  65. DEXAMETHASONE [Suspect]
     Indication: MULTIPLE MYELOMA
     Dosage: 20 MILLIGRAM
     Route: 065
     Dates: start: 20101104
  66. GRAVOL TAB [Concomitant]
     Indication: NAUSEA
     Dosage: 50 MILLIGRAM
     Route: 041
     Dates: start: 20120110, end: 20120118
  67. SODIUM CHLORIDE [Concomitant]
     Indication: FLUID REPLACEMENT
     Dosage: 40 CC
     Route: 040
     Dates: start: 20120111, end: 20120112
  68. SODIUM CHLORIDE [Concomitant]
     Dosage: 500 MILLILITER
     Route: 040
     Dates: start: 20120113, end: 20120117
  69. SENOKOT [Concomitant]
     Indication: CONSTIPATION
     Route: 048
     Dates: end: 20120110
  70. SODIUM CHLORIDE [Concomitant]
     Indication: HYPOTENSION
     Dosage: 1 LITERS
     Route: 040
     Dates: start: 20120117, end: 20120117
  71. VERSED [Concomitant]
     Dosage: 25 MILLIGRAM
     Route: 065
     Dates: start: 20120121
  72. SOLU-CORTEF [Concomitant]
     Indication: INFECTION
     Route: 041
  73. PNEUMOVAX 23 [Concomitant]
     Indication: INFECTION PROPHYLAXIS
     Dosage: .5 MILLILITER
     Route: 065
     Dates: start: 20101104, end: 20101104

REACTIONS (2)
  - PNEUMONIA [None]
  - FEBRILE NEUTROPENIA [None]
